FAERS Safety Report 24777459 (Version 1)
Quarter: 2024Q4

REPORT INFORMATION
  Report Type: Report from Study
  Country: US (occurrence: US)
  Receive Date: 20241226
  Receipt Date: 20241226
  Transmission Date: 20250115
  Serious: Yes (Hospitalization)
  Sender: SAREPTA THERAPEUTICS
  Company Number: US-SAREPTA THERAPEUTICS INC.-SRP2024-005409

PATIENT
  Age: 11 Year
  Sex: Male

DRUGS (1)
  1. ELEVIDYS [Suspect]
     Active Substance: DELANDISTROGENE MOXEPARVOVEC-ROKL
     Indication: Product used for unknown indication
     Dosage: UNK UNK, SINGLE
     Dates: start: 20241210, end: 20241210

REACTIONS (4)
  - Troponin I increased [Unknown]
  - Dyspepsia [Unknown]
  - Nausea [Unknown]
  - Vomiting [Unknown]

NARRATIVE: CASE EVENT DATE: 20241211
